FAERS Safety Report 5474469-8 (Version None)
Quarter: 2007Q4

REPORT INFORMATION
  Report Type: 
  Country: None (occurrence: None)
  Receive Date: 20071002
  Receipt Date: 20070926
  Transmission Date: 20080405
  Serious: Yes (Hospitalization)
  Sender: FDA-Public Use
  Company Number: PHFR2007GB02822

PATIENT
  Age: 26 Year
  Sex: Male
  Weight: 66 kg

DRUGS (12)
  1. ORTHOCLONE OKT3 [Suspect]
     Indication: KIDNEY TRANSPLANT REJECTION
     Dosage: 5 MG, UNK
     Dates: start: 19980502, end: 19980502
  2. METHYLPREDNISOLONE [Concomitant]
     Indication: KIDNEY TRANSPLANT REJECTION
     Dosage: 500 MG, UNK
     Route: 042
     Dates: start: 19980427
  3. NEORAL [Suspect]
     Route: 048
     Dates: start: 19980423, end: 19980501
  4. AZATHIOPRINE [Suspect]
     Route: 048
     Dates: start: 19980423, end: 19980504
  5. TACROLIMUS [Suspect]
     Route: 048
     Dates: start: 19980503, end: 19980506
  6. ASPIRIN [Concomitant]
     Indication: THROMBOSIS PROPHYLAXIS
     Dosage: 75 MG, QD
     Route: 048
     Dates: start: 19980507
  7. DOMPERIDONE [Concomitant]
     Indication: DYSPEPSIA
     Route: 048
     Dates: start: 19980429, end: 19980503
  8. LANSOPRAZOLE [Concomitant]
     Indication: DYSPEPSIA
     Route: 048
     Dates: start: 19980427
  9. MYCOPHENOLATE MOFETIL [Concomitant]
     Dosage: 1 G, QD
     Route: 048
     Dates: start: 19980504
  10. NYSTATIN [Concomitant]
     Route: 048
     Dates: start: 19980424
  11. PREDNISOLONE [Concomitant]
     Indication: KIDNEY TRANSPLANT REJECTION
     Dosage: 40 MG, UNK
     Dates: start: 19980507
  12. PREDNISOLONE [Concomitant]
     Dosage: 20 MG, UNK
     Route: 048
     Dates: start: 19980423

REACTIONS (7)
  - ANAPHYLACTIC REACTION [None]
  - BRONCHOSPASM [None]
  - INFLUENZA LIKE ILLNESS [None]
  - KIDNEY TRANSPLANT REJECTION [None]
  - MICROANGIOPATHIC HAEMOLYTIC ANAEMIA [None]
  - PYREXIA [None]
  - RENAL IMPAIRMENT [None]
